FAERS Safety Report 21976326 (Version 1)
Quarter: 2023Q1

REPORT INFORMATION
  Report Type: Spontaneous
  Country: US (occurrence: US)
  Receive Date: 20230210
  Receipt Date: 20230210
  Transmission Date: 20230417
  Serious: No
  Sender: FDA-Public Use
  Company Number: US-GLENMARK PHARMACEUTICALS-2022GMK073183

PATIENT

DRUGS (1)
  1. HEATHER [Suspect]
     Active Substance: NORETHINDRONE
     Indication: Oral contraception
     Dosage: UNK
     Route: 065

REACTIONS (1)
  - Drug ineffective [Unknown]
